FAERS Safety Report 4681241-5 (Version None)
Quarter: 2005Q2

REPORT INFORMATION
  Report Type: 
  Country: None (occurrence: None)
  Receive Date: 20050602
  Receipt Date: 20050602
  Transmission Date: 20051028
  Serious: Yes (Other)
  Sender: FDA-Public Use
  Company Number: None

PATIENT
  Age: 52 Year
  Sex: Male
  Weight: 72.5755 kg

DRUGS (2)
  1. PROCRIT [Suspect]
     Indication: ANAEMIA OF CHRONIC DISEASE
     Dosage: WEEKLY
     Dates: start: 20050523, end: 20050601
  2. PROCRIT [Suspect]
     Indication: RENAL FAILURE CHRONIC
     Dosage: WEEKLY
     Dates: start: 20050523, end: 20050601

REACTIONS (1)
  - HYPERGLYCAEMIA [None]
